FAERS Safety Report 9117928 (Version 1)
Quarter: 2013Q1

REPORT INFORMATION
  Report Type: Spontaneous
  Country: EC (occurrence: EC)
  Receive Date: 20130225
  Receipt Date: 20130225
  Transmission Date: 20140127
  Serious: Yes (Other)
  Sender: FDA-Public Use
  Company Number: CHPA2013EC003501

PATIENT
  Sex: Male

DRUGS (2)
  1. EXCEDRIN EXTRA STRENGTH [Suspect]
     Indication: HEADACHE
     Dosage: UNK, UNK
     Route: 048
     Dates: start: 20130125
  2. ALKA SELTZER [Suspect]
     Indication: PAIN
     Dosage: UNK, UNK
     Route: 065
     Dates: start: 20130125

REACTIONS (4)
  - Drug hypersensitivity [Recovered/Resolved]
  - Eye pruritus [Recovered/Resolved]
  - Eye swelling [Recovered/Resolved]
  - Laryngeal oedema [Recovered/Resolved]
